FAERS Safety Report 23799487 (Version 2)
Quarter: 2024Q2

REPORT INFORMATION
  Report Type: Spontaneous
  Country: US (occurrence: US)
  Receive Date: 20240430
  Receipt Date: 20240503
  Transmission Date: 20240716
  Serious: Yes (Hospitalization, Other)
  Sender: FDA-Public Use
  Company Number: US-ABBVIE-5736714

PATIENT
  Age: 50 Year
  Sex: Female

DRUGS (3)
  1. LUPRON DEPOT [Suspect]
     Active Substance: LEUPROLIDE ACETATE
     Indication: Product used for unknown indication
     Dosage: LAST ADMIN DATE: 2023
     Route: 065
     Dates: start: 202311
  2. LUPRON DEPOT [Suspect]
     Active Substance: LEUPROLIDE ACETATE
     Route: 065
     Dates: start: 20231226
  3. LUPRON DEPOT [Suspect]
     Active Substance: LEUPROLIDE ACETATE
     Route: 065
     Dates: start: 20240123

REACTIONS (13)
  - Breast cancer [Unknown]
  - Adverse drug reaction [Unknown]
  - Intraductal proliferative breast lesion [Unknown]
  - Bladder pain [Unknown]
  - Catheter placement [Unknown]
  - Bladder hypertrophy [Unknown]
  - Urinary tract infection [Unknown]
  - Incontinence [Unknown]
  - Renal pain [Unknown]
  - Off label use [Unknown]
  - Bladder disorder [Unknown]
  - Lymphoma [Unknown]
  - Cystitis [Unknown]

NARRATIVE: CASE EVENT DATE: 20240101
